FAERS Safety Report 4505401-9 (Version None)
Quarter: 2004Q4

REPORT INFORMATION
  Report Type: 
  Country: None (occurrence: None)
  Receive Date: 20041116
  Receipt Date: 20041018
  Transmission Date: 20050328
  Serious: Yes (Life-Threatening)
  Sender: FDA-Public Use
  Company Number: S04-GER-07598-01

PATIENT
  Age: 88 Year
  Sex: Female

DRUGS (5)
  1. CITALOPRAM HYDROBROMIDE [Suspect]
     Indication: DEPRESSION
     Dosage: 20 MG QD PO
     Route: 048
     Dates: start: 20040810, end: 20040912
  2. CORVATION ^AVENTIS PHARMA^ (MOLSIDOMINE) [Concomitant]
  3. CARMEN (LERCANIDIPINE) [Concomitant]
  4. ISMO [Concomitant]
  5. NOVOTHYRAL [Concomitant]

REACTIONS (1)
  - HYPONATRAEMIA [None]
